FAERS Safety Report 12827930 (Version 4)
Quarter: 2016Q4

REPORT INFORMATION
  Report Type: Report from Study
  Country: None (occurrence: AT)
  Receive Date: 20161007
  Receipt Date: 20161116
  Transmission Date: 20170207
  Serious: Yes (Hospitalization)
  Sender: FDA-Public Use
  Company Number: AT-ABBVIE-16P-009-1743612-00

PATIENT
  Age: 71 Year
  Sex: Female

DRUGS (13)
  1. NOMEXOR [Concomitant]
     Active Substance: NEBIVOLOL HYDROCHLORIDE
     Indication: HYPERTENSION
  2. VENETOCLAX [Suspect]
     Active Substance: VENETOCLAX
     Indication: B-CELL LYMPHOMA
     Dosage: MOST RECENT DOSE WAS ON 17/SEP/2016, 800 (UNIT NOT REPORTED)
     Route: 048
     Dates: start: 20160822
  3. PREDNISONE. [Suspect]
     Active Substance: PREDNISONE
     Indication: B-CELL LYMPHOMA
     Dosage: DATE OF MOST RECENT DOSE  WAS ON 12/SEP/2016, DOSE 100 MG (UNIT AS PER PROTOCOL)
     Route: 048
     Dates: start: 20160818
  4. AMELIOR PLUS HCT [Concomitant]
     Indication: HYPERTENSION
  5. CYCLOPHOSPHAMIDE. [Suspect]
     Active Substance: CYCLOPHOSPHAMIDE
     Indication: B-CELL LYMPHOMA
     Dosage: DATE OF MOST RECENT DOSE WAS ON 08/SEP/2016 AT 16:30, DOSE 1250 (UNIT NOT REPORTED)
     Route: 042
     Dates: start: 20160819
  6. EMPAGLIFLOZIN [Concomitant]
     Active Substance: EMPAGLIFLOZIN
     Indication: TYPE 2 DIABETES MELLITUS
     Dosage: WITH METFORMIN
  7. DIAMICRON [Concomitant]
     Active Substance: GLICLAZIDE
     Indication: TYPE 2 DIABETES MELLITUS
  8. EUTHYROX [Concomitant]
     Active Substance: LEVOTHYROXINE SODIUM
     Indication: HYPOTHYROIDISM
  9. RITUXIMAB [Suspect]
     Active Substance: RITUXIMAB
     Indication: B-CELL LYMPHOMA
     Dosage: DATE OF MOST RECENT DOSE WAS ON 08/SEP/2016 AT 13:07, DOSE 630 (UNITS NOT REPORTED)
     Route: 042
     Dates: start: 20160818
  10. VINCRISTINE [Suspect]
     Active Substance: VINCRISTINE
     Indication: B-CELL LYMPHOMA
     Dosage: DATE OF MOST RECENT DOSE  WAS ON 08/SEP/2016 AT 16:18, DOSE 1 (UNIT NOT REPORTED)
     Route: 042
     Dates: start: 20160819
  11. DOXORUBICIN [Suspect]
     Active Substance: DOXORUBICIN
     Indication: B-CELL LYMPHOMA
     Dosage: DATE OF MOST RECENT DOSE WAS ON 08/SEP/2016 AT 16:20, DOSE 85 (UNIT NOT REPORTED)
     Route: 042
     Dates: start: 20160819
  12. PRAXITEN [Concomitant]
     Active Substance: OXAZEPAM
     Indication: NERVOUSNESS
  13. RED BLOOD CELL CONCENTRATE [Concomitant]
     Active Substance: HUMAN RED BLOOD CELL
     Indication: ANAEMIA
     Dates: start: 20160923, end: 20160923

REACTIONS (1)
  - Urinary tract infection [Recovered/Resolved]

NARRATIVE: CASE EVENT DATE: 20160929
